FAERS Safety Report 6907333-5 (Version None)
Quarter: 2010Q3

REPORT INFORMATION
  Report Type: 
  Country: None (occurrence: None)
  Receive Date: 20100802
  Receipt Date: 20100719
  Transmission Date: 20110219
  Serious: Yes (Other)
  Sender: FDA-Public Use
  Company Number: 10-089

PATIENT
  Age: 69 Year
  Sex: Female

DRUGS (2)
  1. CEFTRIAXONE [Suspect]
     Indication: CELLULITIS
     Dosage: 2 GRAMS PER DAY
  2. ANTI HYPERTENSIVES [Concomitant]

REACTIONS (11)
  - ABDOMINAL PAIN [None]
  - BLOOD CREATINE PHOSPHOKINASE INCREASED [None]
  - BLOOD LACTATE DEHYDROGENASE INCREASED [None]
  - HAEMOGLOBIN DECREASED [None]
  - MEGAKARYOCYTES DECREASED [None]
  - MELAENA [None]
  - MUSCLE HAEMORRHAGE [None]
  - PETECHIAE [None]
  - PLATELET DESTRUCTION INCREASED [None]
  - SHOCK [None]
  - THROMBOCYTOPENIA [None]
